FAERS Safety Report 9735157 (Version 2)
Quarter: 2013Q4

REPORT INFORMATION
  Report Type: Spontaneous
  Country: GB (occurrence: None)
  Receive Date: 20131204
  Receipt Date: 20131219
  Transmission Date: 20140711
  Serious: Yes (Hospitalization)
  Sender: FDA-Public Use
  Company Number: 2037926

PATIENT
  Age: 47 Year
  Sex: Female

DRUGS (9)
  1. DOCETAXEL [Suspect]
     Indication: BREAST CANCER
     Dosage: 130 MG MILLIGRAM(S), UNKNOWN , INTRAVENOUS
     Route: 042
     Dates: start: 20130917
  2. (ACICLOVIR) [Concomitant]
  3. PERTIZIMAB [Concomitant]
  4. ONDANSETRON [Concomitant]
  5. DEXAMETHASONE [Concomitant]
  6. HYDROCORTISONE [Concomitant]
  7. CHLORPHENAMINE [Concomitant]
  8. METOCLOPRAMIDE [Concomitant]
  9. TRASTUZUMAB [Concomitant]

REACTIONS (1)
  - Neutropenic sepsis [None]
